FAERS Safety Report 7141385-5 (Version None)
Quarter: 2010Q4

REPORT INFORMATION
  Report Type: 
  Country: None (occurrence: None)
  Receive Date: 20101202
  Receipt Date: 20101202
  Transmission Date: 20110411
  Serious: Yes (Other)
  Sender: FDA-Public Use
  Company Number: None

PATIENT
  Age: 83 Year
  Sex: Female
  Weight: 90.7194 kg

DRUGS (2)
  1. LEVAQUIN [Suspect]
     Indication: CHEST DISCOMFORT
     Dosage: 500 MG ONE A DAY
     Dates: start: 20101005, end: 20101015
  2. . [Concomitant]

REACTIONS (6)
  - ARTHRALGIA [None]
  - CORRECTIVE LENS USER [None]
  - JOINT CREPITATION [None]
  - PRURITUS GENERALISED [None]
  - SKIN EXFOLIATION [None]
  - VISUAL IMPAIRMENT [None]
